FAERS Safety Report 15762239 (Version 3)
Quarter: 2019Q1

REPORT INFORMATION
  Report Type: Report from Study
  Country: AE (occurrence: AE)
  Receive Date: 20181226
  Receipt Date: 20190122
  Transmission Date: 20190417
  Serious: Yes (Other)
  Sender: FDA-Public Use
  Company Number: AE-JNJFOC-20181223874

PATIENT
  Age: 49 Year
  Sex: Female
  Weight: 97 kg

DRUGS (3)
  1. INSULIN GLARGINE [Suspect]
     Active Substance: INSULIN GLARGINE
     Indication: DIABETES MELLITUS
     Route: 058
  2. GLUCOPHAGE [Suspect]
     Active Substance: METFORMIN HYDROCHLORIDE
     Indication: DIABETES MELLITUS
     Route: 048
  3. INVEGA SUSTENNA [Suspect]
     Active Substance: PALIPERIDONE PALMITATE
     Indication: SCHIZOPHRENIA
     Route: 030
     Dates: start: 20180716

REACTIONS (3)
  - Diabetes mellitus inadequate control [Not Recovered/Not Resolved]
  - Toe amputation [Unknown]
  - Diabetic foot [Recovered/Resolved]

NARRATIVE: CASE EVENT DATE: 201811
